FAERS Safety Report 6239709-6 (Version None)
Quarter: 2009Q2

REPORT INFORMATION
  Report Type: 
  Country: None (occurrence: None)
  Receive Date: 20090619
  Receipt Date: 20090605
  Transmission Date: 20091009
  Serious: Yes (Death)
  Sender: FDA-Public Use
  Company Number: A-CH2009-25712

PATIENT
  Age: 73 Year
  Sex: Female

DRUGS (3)
  1. TRACLEER [Suspect]
     Indication: PULMONARY ARTERIAL HYPERTENSION
     Dosage: 125 MG, BID, ORAL; 62.5 MG, BID,
     Route: 048
     Dates: start: 20080901, end: 20081001
  2. TRACLEER [Suspect]
     Indication: PULMONARY ARTERIAL HYPERTENSION
     Dosage: 125 MG, BID, ORAL; 62.5 MG, BID,
     Route: 048
     Dates: start: 20081001, end: 20090401
  3. PREDNISOLONE [Concomitant]

REACTIONS (3)
  - CARDIAC FAILURE [None]
  - DISSEMINATED TUBERCULOSIS [None]
  - SEPSIS [None]
